FAERS Safety Report 5128747-2 (Version None)
Quarter: 2006Q4

REPORT INFORMATION
  Report Type: 
  Country: None (occurrence: None)
  Receive Date: 20061017
  Receipt Date: 20061006
  Transmission Date: 20070319
  Serious: Yes (Life-Threatening, Hospitalization)
  Sender: FDA-Public Use
  Company Number: PT-MERCK-0610PRT00006

PATIENT
  Age: 81 Year
  Sex: Male

DRUGS (1)
  1. INVANZ [Suspect]
     Indication: PANCREATITIS
     Route: 042
     Dates: start: 20060919, end: 20060921

REACTIONS (2)
  - COMA [None]
  - SYNCOPE [None]
